FAERS Safety Report 16245799 (Version 1)
Quarter: 2019Q2

REPORT INFORMATION
  Report Type: Spontaneous
  Country: TW (occurrence: TW)
  Receive Date: 20190426
  Receipt Date: 20190426
  Transmission Date: 20190711
  Serious: Yes (Other)
  Sender: FDA-Public Use
  Company Number: TW-ELI_LILLY_AND_COMPANY-TW201904012391

PATIENT
  Age: 41 Year
  Sex: Male
  Weight: 59 kg

DRUGS (5)
  1. CISPLATIN. [Concomitant]
     Active Substance: CISPLATIN
     Indication: GINGIVAL CANCER
     Dosage: 110 MG, UNK
     Dates: start: 20170926
  2. FLUOROURACIL. [Concomitant]
     Active Substance: FLUOROURACIL
     Indication: GINGIVAL CANCER
     Dosage: 1000 MG, UNK
     Dates: start: 20170926
  3. NIVOLUMAB [Concomitant]
     Active Substance: NIVOLUMAB
     Indication: GINGIVAL CANCER
     Dosage: 100 MG, UNK
     Route: 041
     Dates: start: 20170930
  4. DOCETAXEL. [Concomitant]
     Active Substance: DOCETAXEL
     Indication: GINGIVAL CANCER
     Dosage: 110 MG, UNK
     Dates: start: 20170926
  5. ERBITUX [Suspect]
     Active Substance: CETUXIMAB
     Indication: GINGIVAL CANCER
     Dosage: 680 MG, UNK
     Route: 041
     Dates: start: 20170926, end: 20171016

REACTIONS (10)
  - Diarrhoea [Unknown]
  - Nausea [Unknown]
  - Vomiting [Unknown]
  - Anaemia [Unknown]
  - Alopecia [Unknown]
  - Leukopenia [Unknown]
  - Fatigue [Unknown]
  - Neutropenia [Unknown]
  - Decreased appetite [Unknown]
  - Dermatitis [Unknown]

NARRATIVE: CASE EVENT DATE: 2017
